FAERS Safety Report 4505804-2 (Version None)
Quarter: 2004Q4

REPORT INFORMATION
  Report Type: 
  Country: None (occurrence: None)
  Receive Date: 20041119
  Receipt Date: 20041112
  Transmission Date: 20050328
  Serious: Yes (Other)
  Sender: FDA-Public Use
  Company Number: US-BRISTOL-MYERS SQUIBB COMPANY-12768354

PATIENT
  Age: 74 Year
  Sex: Male
  Weight: 80 kg

DRUGS (4)
  1. CETUXIMAB [Suspect]
     Indication: PANCREATIC CARCINOMA
     Dosage: ON 17-SEP-2004, THERAPY INITIATED.  TOTAL DOSE ADMIN. THIS COURSE 1734 MG.
     Route: 042
     Dates: start: 20041001, end: 20041001
  2. DOCETAXEL [Suspect]
     Indication: PANCREATIC CARCINOMA
     Dosage: ON 17-SEP-2004, THERAPY INITIATED.  TOTAL DOSE ADMIN. THIS COURSE 196 MG.
     Route: 042
     Dates: start: 20041001, end: 20041001
  3. ENOXAPARIN [Concomitant]
     Dosage: ON 17-SEP-2004, THERAPY INITIATED.  TOTAL DOSE ADMIN. THIS COURSE 840 MG.
     Route: 042
     Dates: start: 20041007, end: 20041007
  4. IRINOTECAN [Suspect]
     Indication: PANCREATIC CARCINOMA
     Dosage: ON 17-SEP-2004, THERAPY INITIATED.  TOTAL DOSE ADMIN. THIS COURSE 279 MG.
     Route: 042
     Dates: start: 20041001, end: 20041001

REACTIONS (1)
  - HYPOMAGNESAEMIA [None]
